FAERS Safety Report 23988707 (Version 1)
Quarter: 2024Q2

REPORT INFORMATION
  Report Type: Spontaneous
  Country: US (occurrence: US)
  Receive Date: 20240619
  Receipt Date: 20240619
  Transmission Date: 20240716
  Serious: No
  Sender: FDA-Public Use
  Company Number: US-TAKEDA-2024TUS057815

PATIENT
  Sex: Male
  Weight: 73 kg

DRUGS (3)
  1. FRUZAQLA [Suspect]
     Active Substance: FRUQUINTINIB
     Indication: Colorectal cancer metastatic
     Dosage: 5 MILLIGRAM, QD
     Route: 048
     Dates: start: 2024
  2. FRUZAQLA [Suspect]
     Active Substance: FRUQUINTINIB
     Indication: Metastases to lung
  3. FRUZAQLA [Suspect]
     Active Substance: FRUQUINTINIB
     Indication: Metastases to liver

REACTIONS (2)
  - Fatigue [Unknown]
  - Hypersomnia [Unknown]
